FAERS Safety Report 18566886 (Version 1)
Quarter: 2020Q4

REPORT INFORMATION
  Report Type: Report from Study
  Country: None (occurrence: US)
  Receive Date: 20201201
  Receipt Date: 20201201
  Transmission Date: 20210114
  Serious: Yes (Other)
  Sender: FDA-Public Use
  Company Number: US-ABBVIE-20K-163-3507097-00

PATIENT
  Age: 73 Year
  Sex: Male

DRUGS (5)
  1. PROGRAF [Concomitant]
     Active Substance: TACROLIMUS
     Indication: RENAL TRANSPLANT
     Route: 048
  2. PREDNISONE. [Concomitant]
     Active Substance: PREDNISONE
     Indication: RENAL TRANSPLANT
     Route: 048
  3. TOPROL XL [Concomitant]
     Active Substance: METOPROLOL SUCCINATE
     Indication: HYPERTENSION
     Route: 048
  4. HUMIRA [Suspect]
     Active Substance: ADALIMUMAB
     Indication: CROHN^S DISEASE
     Route: 058
     Dates: start: 20200310
  5. NORVASC [Concomitant]
     Active Substance: AMLODIPINE BESYLATE
     Indication: HYPERTENSION
     Route: 048

REACTIONS (6)
  - Pain in extremity [Recovering/Resolving]
  - Hypoaesthesia [Recovering/Resolving]
  - Paraesthesia [Unknown]
  - Insomnia [Recovering/Resolving]
  - Carpal tunnel syndrome [Recovering/Resolving]
  - Nerve compression [Recovering/Resolving]

NARRATIVE: CASE EVENT DATE: 2020
